FAERS Safety Report 7771500-1 (Version None)
Quarter: 2011Q3

REPORT INFORMATION
  Report Type: 
  Country: None (occurrence: None)
  Receive Date: 20110922
  Receipt Date: 20110912
  Transmission Date: 20111222
  Serious: No
  Sender: FDA-Public Use
  Company Number: US-B.I. PHARMACEUTICALS,INC./RIDGEFIELD-2011-BP-22062BP

PATIENT
  Sex: Male

DRUGS (9)
  1. TOPROL-XL [Concomitant]
     Indication: HYPERTENSION
     Dosage: 200 MG
     Route: 048
     Dates: start: 20101101
  2. FLONASE [Concomitant]
     Indication: NASAL DISORDER
     Dates: start: 20060101
  3. CALTRATE + D [Concomitant]
     Indication: RIB FRACTURE
     Route: 048
     Dates: start: 20080101
  4. COMBIVENT [Concomitant]
     Indication: DYSPNOEA
     Dosage: 8 PUF
     Route: 055
     Dates: start: 20060101
  5. PRADAXA [Suspect]
     Indication: ATRIAL FIBRILLATION
     Dosage: 300 MG
     Route: 048
     Dates: start: 20101101
  6. METFORMIN [Concomitant]
     Indication: GLUCOSE TOLERANCE IMPAIRED
     Dosage: 1000 MG
     Route: 048
     Dates: start: 20080101
  7. TOPROL-XL [Concomitant]
     Indication: ATRIAL FIBRILLATION
  8. WELLBUTRIN SR [Concomitant]
     Indication: DEPRESSION
     Dosage: 200 MG
     Route: 048
     Dates: start: 20080101
  9. COZAAR [Concomitant]
     Indication: HYPERTENSION
     Dosage: 100 MG
     Route: 048
     Dates: start: 20080101

REACTIONS (5)
  - OEDEMA PERIPHERAL [None]
  - SKIN IRRITATION [None]
  - SWELLING FACE [None]
  - EYELID OEDEMA [None]
  - SWELLING [None]
